FAERS Safety Report 5874288-4 (Version None)
Quarter: 2008Q3

REPORT INFORMATION
  Report Type: 
  Country: None (occurrence: None)
  Receive Date: 20080908
  Receipt Date: 20080827
  Transmission Date: 20090109
  Serious: Yes (Hospitalization)
  Sender: FDA-Public Use
  Company Number: ES-ELI_LILLY_AND_COMPANY-ES200808006015

PATIENT
  Age: 78 Year
  Sex: Female

DRUGS (9)
  1. FORTEO [Suspect]
     Indication: OSTEOPOROSIS
     Dosage: 20 UG, UNKNOWN
     Route: 058
     Dates: start: 20080201
  2. DACORTIN [Concomitant]
     Indication: CARDIOVASCULAR DISORDER
  3. CORTISONE [Concomitant]
     Indication: CARDIOVASCULAR DISORDER
  4. FLUMIL /00082801/ [Concomitant]
     Indication: PULMONARY FIBROSIS
  5. NORPRAMIN [Concomitant]
  6. TYLIDOL [Concomitant]
  7. DIMOPHEN [Concomitant]
  8. ANTIHYPERTENSIVES [Concomitant]
     Indication: HYPERTENSION
  9. CHOLESTEROL- AND TRIGLYCERIDE REDUCERS [Concomitant]
     Indication: BLOOD CHOLESTEROL INCREASED

REACTIONS (1)
  - ANAEMIA [None]
